FAERS Safety Report 25385341 (Version 1)
Quarter: 2025Q2

REPORT INFORMATION
  Report Type: Spontaneous
  Country: US (occurrence: None)
  Receive Date: 20250602
  Receipt Date: 20250602
  Transmission Date: 20250717
  Serious: Yes (Disabling, Other)
  Sender: FDA-CTU
  Company Number: None

PATIENT
  Age: 35 Year
  Sex: Female
  Weight: 81 kg

DRUGS (5)
  1. ESCITALOPRAM [Suspect]
     Active Substance: ESCITALOPRAM OXALATE
     Indication: Anxiety
     Dates: start: 20151001, end: 20250228
  2. ESCITALOPRAM [Suspect]
     Active Substance: ESCITALOPRAM OXALATE
     Indication: Persistent depressive disorder
  3. ESCITALOPRAM [Suspect]
     Active Substance: ESCITALOPRAM OXALATE
     Indication: Depression
  4. ESCITALOPRAM [Suspect]
     Active Substance: ESCITALOPRAM OXALATE
     Indication: Persistent depressive disorder
  5. ESCITALOPRAM [Suspect]
     Active Substance: ESCITALOPRAM OXALATE
     Indication: Depression

REACTIONS (13)
  - Sexual dysfunction [None]
  - Hypothyroidism [None]
  - Type 2 diabetes mellitus [None]
  - Binge drinking [None]
  - Binge eating [None]
  - Withdrawal syndrome [None]
  - Dizziness [None]
  - Vertigo [None]
  - Amnesia [None]
  - Brain fog [None]
  - Anxiety [None]
  - Weight increased [None]
  - Disability [None]

NARRATIVE: CASE EVENT DATE: 20230615
